FAERS Safety Report 7183422-8 (Version None)
Quarter: 2010Q4

REPORT INFORMATION
  Report Type: 
  Country: None (occurrence: None)
  Receive Date: 20101220
  Receipt Date: 20101220
  Transmission Date: 20110411
  Serious: Yes (Hospitalization)
  Sender: FDA-Public Use
  Company Number: None

PATIENT
  Age: 62 Year
  Sex: Male
  Weight: 78.4723 kg

DRUGS (2)
  1. LACTULOSE 30ML HI-TECH [Suspect]
     Indication: HEPATIC ENCEPHALOPATHY
     Dosage: 30 ML TID PO
     Route: 048
     Dates: start: 20100921, end: 20101026
  2. LACTULOSE 30ML HI-TECH [Suspect]
     Indication: HEPATIC ENCEPHALOPATHY
     Dosage: 30 ML TID PO
     Route: 048
     Dates: start: 20101029, end: 20101105

REACTIONS (2)
  - NAUSEA [None]
  - VOMITING [None]
